FAERS Safety Report 6145197-0 (Version None)
Quarter: 2009Q2

REPORT INFORMATION
  Report Type: 
  Country: None (occurrence: None)
  Receive Date: 20090406
  Receipt Date: 20090401
  Transmission Date: 20091009
  Serious: No
  Sender: FDA-Public Use
  Company Number: US-B.I. PHARMACEUTICALS,INC./RIDGEFIELD-2009-BP-04151BP

PATIENT
  Sex: Female

DRUGS (11)
  1. COMBIVENT [Suspect]
     Indication: CHRONIC OBSTRUCTIVE PULMONARY DISEASE
     Route: 055
     Dates: start: 20060101
  2. METFORMIN HCL [Concomitant]
     Indication: DIABETES MELLITUS
     Dosage: 1000MG
     Route: 048
  3. POTASSIUM CHLORIDE [Concomitant]
     Dosage: 40MG
     Route: 048
  4. NAPROSYN [Concomitant]
     Indication: BACK PAIN
     Dosage: 1000MG
     Route: 048
  5. TEMAZEPAM [Concomitant]
     Indication: ANXIETY
     Dosage: 30MG
     Route: 048
  6. ZETIA [Concomitant]
     Indication: BLOOD CHOLESTEROL INCREASED
     Dosage: 10MG
     Route: 048
  7. PREMARIN [Concomitant]
     Route: 048
  8. AMITRIPTYLINE [Concomitant]
     Indication: ANXIETY
     Route: 048
  9. EFFEXOR [Concomitant]
     Indication: ANXIETY
     Dosage: 75MG
     Route: 048
  10. XANAX [Concomitant]
     Indication: ANXIETY
     Dosage: 4MG
     Route: 048
  11. PERCOCET [Concomitant]
     Indication: BACK PAIN
     Dosage: 325MG
     Route: 048

REACTIONS (6)
  - ATRIAL FIBRILLATION [None]
  - CARDIAC DISORDER [None]
  - DRUG ADMINISTRATION ERROR [None]
  - EYE IRRITATION [None]
  - OCULAR HYPERAEMIA [None]
  - THERMAL BURN [None]
